FAERS Safety Report 17824680 (Version 2)
Quarter: 2020Q3

REPORT INFORMATION
  Report Type: Report from Study
  Country: JO (occurrence: LB)
  Receive Date: 20200526
  Receipt Date: 20200701
  Transmission Date: 20201102
  Serious: Yes (Hospitalization)
  Sender: FDA-Public Use
  Company Number: NVSC2020JO141218

PATIENT
  Sex: Male
  Weight: 73 kg

DRUGS (5)
  1. ASPIRIN. [Concomitant]
     Active Substance: ASPIRIN
     Indication: PRODUCT USED FOR UNKNOWN INDICATION
     Dosage: 1 DF, QD
     Route: 065
  2. JADENU [Suspect]
     Active Substance: DEFERASIROX
     Indication: THALASSAEMIA
     Dosage: 360 MG (STOP FOR 2 MONTHS)
     Route: 048
     Dates: start: 20190328
  3. XARELTO [Concomitant]
     Active Substance: RIVAROXABAN
     Indication: PRODUCT USED FOR UNKNOWN INDICATION
     Dosage: 1 DF, QD
     Route: 065
  4. JADENU [Suspect]
     Active Substance: DEFERASIROX
     Indication: IRON OVERLOAD
  5. FOLIC ACID. [Concomitant]
     Active Substance: FOLIC ACID
     Indication: PRODUCT USED FOR UNKNOWN INDICATION
     Dosage: 1 DF, QD
     Route: 065

REACTIONS (5)
  - Back pain [Recovered/Resolved]
  - Weight decreased [Recovered/Resolved]
  - Thrombosis [Recovered/Resolved]
  - Abdominal pain upper [Recovered/Resolved]
  - Hypophagia [Recovered/Resolved]
